FAERS Safety Report 5840360-8 (Version None)
Quarter: 2008Q3

REPORT INFORMATION
  Report Type: 
  Country: None (occurrence: None)
  Receive Date: 20080811
  Receipt Date: 20080731
  Transmission Date: 20090109
  Serious: Yes (Death, Hospitalization)
  Sender: FDA-Public Use
  Company Number: US-MERCK-0808USA00099

PATIENT
  Age: 73 Year
  Sex: Male

DRUGS (2)
  1. DECADRON SRC [Suspect]
     Route: 048
  2. TEMOZOLOMIDE [Concomitant]
     Indication: GLIOBLASTOMA MULTIFORME
     Route: 065

REACTIONS (1)
  - MENINGITIS CRYPTOCOCCAL [None]
